FAERS Safety Report 5878122-8 (Version None)
Quarter: 2008Q3

REPORT INFORMATION
  Report Type: 
  Country: None (occurrence: None)
  Receive Date: 20080911
  Receipt Date: 20080905
  Transmission Date: 20090109
  Serious: Yes (Other)
  Sender: FDA-Public Use
  Company Number: A0746894A

PATIENT
  Age: 22 Year
  Sex: Male
  Weight: 70 kg

DRUGS (4)
  1. NIQUITIN 21MG [Suspect]
     Indication: SMOKING CESSATION THERAPY
     Dates: start: 20080831
  2. NASONEX [Concomitant]
     Route: 045
  3. LITHIUM CARBONATE [Concomitant]
     Dosage: 800MG PER DAY
     Route: 048
  4. UNKNOWN [Concomitant]

REACTIONS (3)
  - ASTHMA [None]
  - INSOMNIA [None]
  - VOMITING [None]
